FAERS Safety Report 24248322 (Version 3)
Quarter: 2025Q3

REPORT INFORMATION
  Report Type: Spontaneous
  Country: JP (occurrence: JP)
  Receive Date: 20240826
  Receipt Date: 20250808
  Transmission Date: 20251021
  Serious: Yes (Death, Life-Threatening, Hospitalization, Other)
  Sender: BRISTOL-MYERS SQUIBB COMPANY
  Company Number: JP-BRISTOL-MYERS SQUIBB COMPANY-2024-130529

PATIENT
  Age: 83 Year
  Sex: Female
  Weight: 63 kg

DRUGS (14)
  1. YERVOY [Suspect]
     Active Substance: IPILIMUMAB
     Indication: Non-small cell lung cancer
     Route: 041
     Dates: start: 20211012, end: 20211102
  2. YERVOY [Suspect]
     Active Substance: IPILIMUMAB
     Route: 041
     Dates: start: 20211102, end: 20240710
  3. OPDIVO [Suspect]
     Active Substance: NIVOLUMAB
     Indication: Non-small cell lung cancer
     Route: 041
     Dates: start: 20211012, end: 20211102
  4. OPDIVO [Suspect]
     Active Substance: NIVOLUMAB
     Route: 041
     Dates: start: 20211102, end: 20240710
  5. CARBOCYSTEINE [Concomitant]
     Active Substance: CARBOCYSTEINE
     Indication: Product used for unknown indication
     Dosage: AFTER EVERY MEAL
     Route: 048
     Dates: start: 20211001
  6. ROSUVASTATIN [Concomitant]
     Active Substance: ROSUVASTATIN
     Indication: Product used for unknown indication
     Dosage: AFTER DINNER
     Route: 048
     Dates: start: 20211001
  7. SPIRONOLACTONE [Concomitant]
     Active Substance: SPIRONOLACTONE
     Indication: Product used for unknown indication
     Dosage: AFTER BREAKFAST
     Route: 048
     Dates: start: 20211001
  8. FUROSEMIDE [Concomitant]
     Active Substance: FUROSEMIDE
     Indication: Product used for unknown indication
     Dosage: AFTER BREAKFAST
     Route: 048
     Dates: start: 20211001
  9. DEXTROMETHORPHAN BIOGARAN [Concomitant]
     Indication: Product used for unknown indication
     Dosage: AFTER EVERY MEAL
     Route: 048
     Dates: start: 20211001
  10. NIFEDIPINE [Concomitant]
     Active Substance: NIFEDIPINE
     Indication: Product used for unknown indication
     Dosage: AFTER BREAKFAST
     Route: 048
     Dates: start: 20211001
  11. ISOSORBIDE DINITRATE [Concomitant]
     Active Substance: ISOSORBIDE DINITRATE
     Indication: Product used for unknown indication
     Route: 062
     Dates: start: 20211001
  12. TULOBUTEROL [Concomitant]
     Active Substance: TULOBUTEROL
     Indication: Product used for unknown indication
     Route: 062
     Dates: start: 20231001
  13. LOXOPROFEN SODIUM DIHYDRATE [Concomitant]
     Active Substance: LOXOPROFEN SODIUM DIHYDRATE
     Indication: Product used for unknown indication
     Route: 062
     Dates: start: 20231001
  14. RESTAMIN KOWA [DIPHENHYDRAMINE] [Concomitant]
     Indication: Product used for unknown indication
     Route: 062
     Dates: start: 20220426

REACTIONS (7)
  - Fulminant type 1 diabetes mellitus [Fatal]
  - Pruritus [Unknown]
  - Acute kidney injury [Unknown]
  - Pancreatic atrophy [Fatal]
  - Diabetic ketoacidosis [Recovering/Resolving]
  - Hyperkalaemia [Unknown]
  - Blood pressure decreased [Unknown]

NARRATIVE: CASE EVENT DATE: 20211102
